FAERS Safety Report 9085477 (Version 2)
Quarter: 2013Q1

REPORT INFORMATION
  Report Type: Spontaneous
  Country: JP (occurrence: JP)
  Receive Date: 20130218
  Receipt Date: 20130326
  Transmission Date: 20140127
  Serious: Yes (Other)
  Sender: FDA-Public Use
  Company Number: PHHY2013JP007147

PATIENT
  Age: 70 Year
  Sex: Male

DRUGS (3)
  1. EXELON PATCH [Suspect]
     Indication: DEMENTIA ALZHEIMER^S TYPE
     Dosage: 18 MG, DAILY
     Route: 062
     Dates: start: 20121017, end: 20130118
  2. EXELON PATCH [Suspect]
     Dosage: 13.5 MG, DAILY
     Route: 062
     Dates: start: 20130130
  3. MAGMITT [Concomitant]
     Dosage: 990 MG, UNK
     Route: 048

REACTIONS (2)
  - Liver function test abnormal [Recovering/Resolving]
  - Aggression [Unknown]
